FAERS Safety Report 15968799 (Version 1)
Quarter: 2019Q1

REPORT INFORMATION
  Report Type: Spontaneous
  Country: US (occurrence: US)
  Receive Date: 20190215
  Receipt Date: 20190215
  Transmission Date: 20190418
  Serious: Yes (Other)
  Sender: FDA-Public Use
  Company Number: US-TEVA-2019-US-1010656

PATIENT
  Sex: Male

DRUGS (1)
  1. GABAPENTIN CAPSULES ACTAVIS [Suspect]
     Active Substance: GABAPENTIN
     Route: 065
     Dates: start: 201809, end: 201901

REACTIONS (3)
  - Hernia [Unknown]
  - Swelling [Recovered/Resolved]
  - Rash erythematous [Not Recovered/Not Resolved]

NARRATIVE: CASE EVENT DATE: 201810
